FAERS Safety Report 4702388-0 (Version None)
Quarter: 2005Q2

REPORT INFORMATION
  Report Type: 
  Country: None (occurrence: None)
  Receive Date: 20050629
  Receipt Date: 20050617
  Transmission Date: 20051028
  Serious: Yes (Other)
  Sender: FDA-Public Use
  Company Number: US-NOVOPROD-244880

PATIENT
  Sex: Female

DRUGS (2)
  1. PRANDIN [Suspect]
     Indication: DIABETES MELLITUS
     Route: 048
  2. ACTOS [Suspect]
     Indication: DIABETES MELLITUS

REACTIONS (4)
  - BLOOD POTASSIUM DECREASED [None]
  - FALL [None]
  - FRACTURED COCCYX [None]
  - HAEMOGLOBIN DECREASED [None]
